FAERS Safety Report 5110387-2 (Version None)
Quarter: 2006Q3

REPORT INFORMATION
  Report Type: 
  Country: None (occurrence: None)
  Receive Date: 20060921
  Receipt Date: 20060901
  Transmission Date: 20061208
  Serious: Yes (Other)
  Sender: FDA-Public Use
  Company Number: IE-BRISTOL-MYERS SQUIBB COMPANY-13496799

PATIENT
  Age: 20 Year
  Sex: Female

DRUGS (1)
  1. KENALOG [Suspect]
     Route: 030

REACTIONS (1)
  - FAT NECROSIS [None]
